FAERS Safety Report 19004846 (Version 2)
Quarter: 2021Q1

REPORT INFORMATION
  Report Type: Spontaneous
  Country: US (occurrence: US)
  Receive Date: 20210313
  Receipt Date: 20210323
  Transmission Date: 20210420
  Serious: Yes (Disabling)
  Sender: FDA-Public Use
  Company Number: US-AMGEN-USASP2021036249

PATIENT
  Age: 85 Year
  Sex: Female

DRUGS (5)
  1. REPATHA [Suspect]
     Active Substance: EVOLOCUMAB
     Indication: MUSCLE SPASMS
     Dosage: 140 MILLIGRAM, Q2WK
     Route: 058
     Dates: start: 2018
  2. REPATHA [Suspect]
     Active Substance: EVOLOCUMAB
     Indication: HYPERCHOLESTEROLAEMIA
  3. METOPROLOL. [Concomitant]
     Active Substance: METOPROLOL
     Dosage: 25 MILLIGRAM
  4. PANTOPRAZOLE [Concomitant]
     Active Substance: PANTOPRAZOLE
     Indication: DYSPEPSIA
     Dosage: 40 MILLIGRAM
  5. XARELTO [Concomitant]
     Active Substance: RIVAROXABAN
     Dosage: 20 MILLIGRAM

REACTIONS (6)
  - Mobility decreased [Not Recovered/Not Resolved]
  - Joint swelling [Unknown]
  - Fall [Unknown]
  - Memory impairment [Not Recovered/Not Resolved]
  - Pain in extremity [Not Recovered/Not Resolved]
  - Anaesthetic complication [Not Recovered/Not Resolved]

NARRATIVE: CASE EVENT DATE: 202004
